FAERS Safety Report 8933364 (Version 3)
Quarter: 2012Q4

REPORT INFORMATION
  Report Type: Report from Study
  Country: DE (occurrence: DE)
  Receive Date: 20121129
  Receipt Date: 20121225
  Transmission Date: 20130627
  Serious: Yes (Life-Threatening, Hospitalization)
  Sender: FDA-Public Use
  Company Number: DE-AMGEN-DEUCT2012076225

PATIENT
  Age: 69 Year
  Sex: Male
  Weight: 81 kg

DRUGS (5)
  1. ETANERCEPT [Suspect]
     Indication: PSORIASIS
     Dosage: 50 mg, weekly
     Dates: start: 20120411, end: 201209
  2. DIOVAN 80 [Concomitant]
     Indication: HYPERTENSION
     Dosage: UNK
  3. METHOTREXATE [Concomitant]
     Indication: PSORIASIS
     Dosage: 17.5 mg, weekly
     Dates: start: 200405
  4. METHOTREXATE [Concomitant]
     Dosage: 10 mg, weekly
     Dates: start: 20120411, end: 201209
  5. LEDERFOLAT [Concomitant]
     Dosage: UNK
     Dates: start: 2004, end: 201209

REACTIONS (3)
  - Metastases to central nervous system [Unknown]
  - Lung neoplasm malignant [Unknown]
  - Renal cancer [Unknown]
